FAERS Safety Report 8965175 (Version 1)
Quarter: 2012Q4

REPORT INFORMATION
  Report Type: 
  Country: US (occurrence: US)
  Receive Date: 20121213
  Receipt Date: 20121213
  Transmission Date: 20130627
  Serious: No
  Sender: FDA-Public Use
  Company Number: US-BRISTOL-MYERS SQUIBB COMPANY-16341380

PATIENT
  Age: 67 Year
  Sex: Female
  Weight: 72.56 kg

DRUGS (1)
  1. IXEMPRA [Suspect]
     Dosage: 2 doses; 2nd dose on 06Jan2012
     Dates: start: 201112

REACTIONS (4)
  - Alopecia [Unknown]
  - Bone pain [Not Recovered/Not Resolved]
  - Headache [Not Recovered/Not Resolved]
  - Nausea [Recovered/Resolved]
